FAERS Safety Report 21775901 (Version 1)
Quarter: 2022Q4

REPORT INFORMATION
  Report Type: Spontaneous
  Country: US (occurrence: US)
  Receive Date: 20221226
  Receipt Date: 20221226
  Transmission Date: 20230112
  Serious: No
  Sender: FDA-Public Use
  Company Number: US-MIGRATION_PFIZER-2022BHV002461

PATIENT
  Age: 38 Year
  Sex: Female

DRUGS (1)
  1. NURTEC ODT [Suspect]
     Active Substance: RIMEGEPANT SULFATE
     Indication: Prophylaxis
     Dosage: SHE WAS TRANSITIONING FROM ACUTE TX TO PREVENTIVE TX.
     Route: 048

REACTIONS (1)
  - Product dose omission issue [Recovering/Resolving]
